FAERS Safety Report 25107522 (Version 2)
Quarter: 2025Q1

REPORT INFORMATION
  Report Type: Report from Study
  Country: TW (occurrence: TW)
  Receive Date: 20250321
  Receipt Date: 20250329
  Transmission Date: 20250409
  Serious: Yes (Hospitalization)
  Sender: ABBVIE
  Company Number: TW-ABBVIE-6183438

PATIENT
  Age: 87 Year
  Sex: Male
  Weight: 50 kg

DRUGS (1)
  1. RINVOQ [Suspect]
     Active Substance: UPADACITINIB
     Indication: Rheumatoid arthritis
     Dosage: FORM STRENGTH: 15 MG
     Route: 048
     Dates: start: 20240930, end: 20250311

REACTIONS (3)
  - Asthenia [Unknown]
  - Herpes zoster [Unknown]
  - Decreased appetite [Unknown]

NARRATIVE: CASE EVENT DATE: 20250311
